FAERS Safety Report 5713355-2 (Version None)
Quarter: 2008Q2

REPORT INFORMATION
  Report Type: 
  Country: None (occurrence: None)
  Receive Date: 20080422
  Receipt Date: 20080411
  Transmission Date: 20081010
  Serious: Yes (Hospitalization)
  Sender: FDA-Public Use
  Company Number: US-AMGEN-QUU274138

PATIENT
  Sex: Female

DRUGS (1)
  1. ENBREL [Suspect]
     Indication: RHEUMATOID ARTHRITIS
     Route: 058
     Dates: start: 20070901

REACTIONS (6)
  - ASTHENIA [None]
  - COUGH [None]
  - DISORIENTATION [None]
  - HEADACHE [None]
  - PNEUMONIA [None]
  - PULMONARY CONGESTION [None]
